FAERS Safety Report 7287793-3 (Version None)
Quarter: 2011Q1

REPORT INFORMATION
  Report Type: 
  Country: None (occurrence: None)
  Receive Date: 20110201
  Receipt Date: 20110124
  Transmission Date: 20110831
  Serious: Yes (Hospitalization)
  Sender: FDA-Public Use
  Company Number: 2011AC000007

PATIENT
  Age: 64 Year
  Sex: Male

DRUGS (20)
  1. ADVAIR HFA [Concomitant]
  2. LEVAQUIN [Concomitant]
  3. PLAVIX [Concomitant]
  4. PREVACID [Concomitant]
  5. ZOCOR [Concomitant]
  6. ALTACE [Concomitant]
  7. POTASSIUM [Concomitant]
  8. COREG [Concomitant]
  9. ASPIRIN [Concomitant]
  10. LASIX [Concomitant]
  11. NITROSTAT [Concomitant]
  12. SPIRIVA [Concomitant]
  13. ZETIA [Concomitant]
  14. DIGOXIN [Suspect]
     Dosage: (0.25 MG; QD; PO) (0.125 MG; QD; PO)
     Route: 048
     Dates: start: 20070201
  15. DIGOXIN [Suspect]
     Dosage: (0.25 MG; QD; PO) (0.125 MG; QD; PO)
     Route: 048
     Dates: start: 20031201
  16. FLOMAX [Concomitant]
  17. PREDNISONE [Concomitant]
  18. ALBUTEROL [Concomitant]
  19. VYTORIN [Concomitant]
  20. ZANTAC [Concomitant]

REACTIONS (32)
  - VENTRICULAR FIBRILLATION [None]
  - EMPHYSEMA [None]
  - GASTROOESOPHAGEAL REFLUX DISEASE [None]
  - RESPIRATORY FAILURE [None]
  - DEHYDRATION [None]
  - HYPOTENSION [None]
  - CORONARY ARTERY DISEASE [None]
  - HYPERLIPIDAEMIA [None]
  - HYPERTENSION [None]
  - TOXICITY TO VARIOUS AGENTS [None]
  - VENTRICULAR TACHYCARDIA [None]
  - VENTRICULAR EXTRASYSTOLES [None]
  - SINUS BRADYCARDIA [None]
  - MITRAL VALVE INCOMPETENCE [None]
  - POST PROCEDURAL COMPLICATION [None]
  - PULMONARY HYPERTENSION [None]
  - HYPERCHOLESTEROLAEMIA [None]
  - CHRONIC OBSTRUCTIVE PULMONARY DISEASE [None]
  - RESPIRATORY DISTRESS [None]
  - BRONCHITIS [None]
  - ISCHAEMIC CARDIOMYOPATHY [None]
  - GASTROENTERITIS VIRAL [None]
  - ELECTROCARDIOGRAM T WAVE INVERSION [None]
  - HYPONATRAEMIA [None]
  - AORTIC ARTERIOSCLEROSIS [None]
  - TRICUSPID VALVE INCOMPETENCE [None]
  - CARDIOACTIVE DRUG LEVEL INCREASED [None]
  - CARDIAC FAILURE CONGESTIVE [None]
  - MYOCARDIAL INFARCTION [None]
  - PNEUMONIA [None]
  - PULMONARY VALVE INCOMPETENCE [None]
  - AORTIC VALVE INCOMPETENCE [None]
